FAERS Safety Report 5972868-9 (Version None)
Quarter: 2008Q4

REPORT INFORMATION
  Report Type: 
  Country: None (occurrence: None)
  Receive Date: 20081126
  Receipt Date: 20081126
  Transmission Date: 20090506
  Serious: Yes (Other)
  Sender: FDA-Public Use
  Company Number: None

PATIENT
  Sex: Female
  Weight: 72.5755 kg

DRUGS (1)
  1. ISOSORBIDE MONONITRATE [Suspect]
     Indication: CHEST PAIN
     Dosage: 2 TABS DAILY PO
     Route: 048
     Dates: start: 20081101, end: 20081123

REACTIONS (4)
  - DIZZINESS [None]
  - HEADACHE [None]
  - MUSCLE SPASMS [None]
  - VISION BLURRED [None]
